FAERS Safety Report 7550337-2 (Version None)
Quarter: 2011Q2

REPORT INFORMATION
  Report Type: 
  Country: None (occurrence: None)
  Receive Date: 20110615
  Receipt Date: 20110531
  Transmission Date: 20111010
  Serious: No
  Sender: FDA-Public Use
  Company Number: US-B.I. PHARMACEUTICALS,INC./RIDGEFIELD-2011-BP-03770BP

PATIENT
  Sex: Female

DRUGS (14)
  1. PRADAXA [Suspect]
     Dosage: 150 MG
     Route: 048
     Dates: start: 20110411
  2. AMBIEN [Concomitant]
  3. CARDIZEM [Concomitant]
     Indication: HYPERTENSION
     Dosage: 120 MG
     Route: 048
  4. ASPIRIN [Concomitant]
  5. LABETALOL HCL [Concomitant]
     Indication: HYPERTENSION
     Dosage: 400 MG
     Route: 048
  6. VITAMIN B-12 [Concomitant]
  7. TYLENOL-500 [Concomitant]
     Indication: ARTHRITIS
     Route: 048
  8. LORAZEPAM [Concomitant]
  9. PRADAXA [Suspect]
     Indication: ATRIAL FIBRILLATION
     Dosage: 300 MG
     Route: 048
     Dates: start: 20110129, end: 20110130
  10. OXYBUTYNIN [Concomitant]
  11. CAL/MAG [Concomitant]
  12. CELEBREX [Concomitant]
  13. RANITIDINE [Concomitant]
     Dosage: 300 MG
  14. D-3 [Concomitant]

REACTIONS (6)
  - HAEMORRHAGE [None]
  - PALPITATIONS [None]
  - BLOOD URINE PRESENT [None]
  - DYSPEPSIA [None]
  - EPISTAXIS [None]
  - NAUSEA [None]
